FAERS Safety Report 16843505 (Version 1)
Quarter: 2019Q3

REPORT INFORMATION
  Report Type: Spontaneous
  Country: DE (occurrence: DE)
  Receive Date: 20190924
  Receipt Date: 20190924
  Transmission Date: 20191005
  Serious: Yes (Hospitalization, Other)
  Sender: FDA-Public Use
  Company Number: DE-AUROBINDO-AUR-APL-2019-061417

PATIENT
  Age: 55 Year
  Sex: Female
  Weight: 71 kg

DRUGS (7)
  1. CALCIUM [Suspect]
     Active Substance: CALCIUM
     Indication: MYASTHENIC SYNDROME
     Dosage: 1 GRAM, ONCE A DAY
     Route: 065
     Dates: start: 20140502
  2. AZATHIOPRINE. [Suspect]
     Active Substance: AZATHIOPRINE
     Indication: MYASTHENIC SYNDROME
     Dosage: 100 MILLIGRAM, DAILY (50 MG, BID )
     Route: 065
     Dates: start: 20140502
  3. PANTOPRAZOLE [Suspect]
     Active Substance: PANTOPRAZOLE
     Indication: MYASTHENIC SYNDROME
     Dosage: 20 MILLIGRAM, ONCE A DAY
     Route: 065
     Dates: start: 20140502
  4. VITAMIN D [Suspect]
     Active Substance: VITAMIN D NOS
     Indication: MYASTHENIC SYNDROME
     Dosage: 10 MILLIGRAM, ONCE A DAY
     Route: 065
     Dates: start: 20140502
  5. FIRDAPSE [Suspect]
     Active Substance: AMIFAMPRIDINE
     Indication: MYASTHENIC SYNDROME
     Dosage: 60 MILLIGRAM, DAILY (20 MG,TID)
     Route: 048
     Dates: start: 20140414
  6. AZATHIOPRINE. [Suspect]
     Active Substance: AZATHIOPRINE
     Dosage: 150 MILLIGRAM, DAILY (50 MG, TID )
     Route: 065
     Dates: start: 20140604
  7. PREDNISOLONE. [Suspect]
     Active Substance: PREDNISOLONE
     Indication: MYASTHENIC SYNDROME
     Dosage: 40 MILLIGRAM, ONCE A DAY
     Route: 065
     Dates: start: 20140502

REACTIONS (1)
  - Myasthenic syndrome [Recovered/Resolved with Sequelae]

NARRATIVE: CASE EVENT DATE: 20160127
